FAERS Safety Report 16276859 (Version 1)
Quarter: 2019Q2

REPORT INFORMATION
  Report Type: Spontaneous
  Country: US (occurrence: US)
  Receive Date: 20190506
  Receipt Date: 20190506
  Transmission Date: 20190711
  Serious: No
  Sender: FDA-Public Use
  Company Number: US-PFIZER INC-2019186892

PATIENT
  Age: 77 Year
  Sex: Female
  Weight: 102.6 kg

DRUGS (3)
  1. LYRICA [Suspect]
     Active Substance: PREGABALIN
     Indication: DIABETIC NEUROPATHY
     Dosage: 75 MG, 3X/DAY
  2. LYRICA [Suspect]
     Active Substance: PREGABALIN
     Indication: GOUT
  3. LYRICA [Suspect]
     Active Substance: PREGABALIN
     Indication: SKIN ULCER

REACTIONS (2)
  - Hypertension [Unknown]
  - Fall [Unknown]

NARRATIVE: CASE EVENT DATE: 20170101
